FAERS Safety Report 6019738-8 (Version None)
Quarter: 2008Q4

REPORT INFORMATION
  Report Type: 
  Country: None (occurrence: None)
  Receive Date: 20081224
  Receipt Date: 20081209
  Transmission Date: 20090506
  Serious: Yes (Hospitalization, Other)
  Sender: FDA-Public Use
  Company Number: US-PFIZER INC-2008156590

PATIENT
  Age: 28 Year
  Sex: Female

DRUGS (5)
  1. CHANTIX [Suspect]
     Indication: SMOKING CESSATION THERAPY
     Dosage: 1 MG, 2X/DAY
     Dates: start: 20080101, end: 20081201
  2. GEODON [Suspect]
     Indication: PSYCHOTIC DISORDER
     Dosage: FREQUENCY: ONCE,
     Dates: start: 20081209, end: 20081209
  3. GEODON [Suspect]
     Dosage: 80 MG, 2X/DAY
     Route: 048
     Dates: start: 20081209
  4. RISPERDAL [Suspect]
     Indication: PSYCHOTIC DISORDER
     Dosage: FREQUENCY: ONCE,
     Dates: start: 20081201, end: 20081208
  5. CONTRACEPTIVE, UNSPECIFIED [Concomitant]
     Dosage: UNK

REACTIONS (6)
  - AGITATION [None]
  - BLOOD ALKALINE PHOSPHATASE DECREASED [None]
  - BLOOD POTASSIUM DECREASED [None]
  - FATIGUE [None]
  - MANIA [None]
  - PSYCHOTIC DISORDER [None]
